FAERS Safety Report 12235249 (Version 1)
Quarter: 2016Q2

REPORT INFORMATION
  Report Type: Spontaneous
  Country: US (occurrence: US)
  Receive Date: 20160404
  Receipt Date: 20160404
  Transmission Date: 20160815
  Serious: No
  Sender: FDA-Public Use
  Company Number: US-TARO-2015TAR00830

PATIENT
  Sex: Female
  Weight: 56.69 kg

DRUGS (1)
  1. FLUOROURACIL TOPICAL CREAM USP 5% [Suspect]
     Active Substance: FLUOROURACIL
     Indication: SKIN CANCER
     Dosage: UNK UNK, 2X/DAY
     Route: 061
     Dates: start: 20150813, end: 20150902

REACTIONS (6)
  - Eating disorder [Recovering/Resolving]
  - Lip blister [Recovering/Resolving]
  - Tongue blistering [Recovering/Resolving]
  - Chemical burn of gastrointestinal tract [Recovering/Resolving]
  - Pain [Recovering/Resolving]
  - Poor quality sleep [Recovered/Resolved]

NARRATIVE: CASE EVENT DATE: 2015
